FAERS Safety Report 7945378 (Version 3)
Quarter: 2013Q4

REPORT INFORMATION
  Report Type: Spontaneous
  Country: US (occurrence: US)
  Receive Date: 20110516
  Receipt Date: 20131031
  Transmission Date: 20140711
  Serious: Yes (Other)
  Sender: FDA-Public Use
  Company Number: US-BAYER-2011-040574

PATIENT
  Age: 18 Year
  Sex: Female
  Weight: 68.03 kg

DRUGS (11)
  1. YAZ [Suspect]
     Indication: CONTRACEPTION
     Dosage: UNK
     Dates: start: 2007, end: 2009
  2. YAZ [Suspect]
     Indication: ACNE
  3. YAZ [Suspect]
     Indication: PREMENSTRUAL SYNDROME
  4. LEXAPRO [Concomitant]
     Dosage: 10 MG, UNK
     Route: 048
  5. DUAC [Concomitant]
     Dosage: 5 %, UNK
     Route: 061
     Dates: start: 20090930
  6. DIFLUCAN [Concomitant]
     Dosage: 150 MG, UNK
     Route: 048
     Dates: start: 20090918
  7. CIPRO [Concomitant]
     Dosage: 500 MG, UNK
     Route: 048
  8. METHOCARBAMOL [METHOCARBAMOL] [Concomitant]
     Dosage: 750 MG, UNK
     Route: 048
     Dates: start: 20090917
  9. METHYLPREDNISOLONE [Concomitant]
     Dosage: 4 MG, UNK
     Route: 048
     Dates: start: 20090917
  10. NITROFURANTOIN [Concomitant]
     Dosage: 100 MG, BID
     Route: 048
     Dates: start: 20091105
  11. PRILOSEC [Concomitant]
     Dosage: 20 MG, UNK
     Route: 048
     Dates: start: 20091109

REACTIONS (4)
  - Cholecystitis chronic [None]
  - Gallbladder disorder [None]
  - Pain [None]
  - Depression [None]
